FAERS Safety Report 10098505 (Version 1)
Quarter: 2014Q2

REPORT INFORMATION
  Report Type: Spontaneous
  Country: US (occurrence: None)
  Receive Date: 20140422
  Receipt Date: 20140422
  Transmission Date: 20141212
  Serious: Yes (Hospitalization)
  Sender: FDA-Public Use
  Company Number: None

PATIENT
  Age: 59 Year
  Sex: Male
  Weight: 88.6 kg

DRUGS (13)
  1. 5-FU [Suspect]
     Indication: PANCREATIC CARCINOMA
     Dosage: PER BOSS-?ENTER THE 3 DRUGS AS WRITTEN BY THE FDA REP?USE THE THERAPY DATE AND DIAGNOSIS FOR ALL 3 DRUGS?ENTER THE CONCOMITANTS ON PAGE 1?IGNORE THE REST??
     Dates: start: 20140407
  2. IRINOTECAN [Suspect]
     Indication: PANCREATIC CARCINOMA
     Dosage: PER BOSS-?ENTER THE 3 DRUGS AS WRITTEN BY THE FDA REP?USE THE THERAPY DATE AND DIAGNOSIS FOR ALL 3 DRUGS?ENTER THE CONCOMITANTS ON PAGE 1?IGNORE THE REST??
     Dates: start: 20140407
  3. OXALIPLATIN [Suspect]
     Indication: PANCREATIC CARCINOMA
     Dosage: PER BOSS-?ENTER THE 3 DRUGS AS WRITTEN BY THE FDA REP?USE THE THERAPY DATE AND DIAGNOSIS FOR ALL 3 DRUGS?ENTER THE CONCOMITANTS ON PAGE 1?IGNORE THE REST??
     Dates: start: 20140407
  4. ARIPIPRAZOLE [Concomitant]
  5. ASPIRIN [Concomitant]
  6. BUSPIRONE [Concomitant]
  7. FLOMAX [Concomitant]
  8. OMEPRAZOLE [Concomitant]
  9. PAXIL [Concomitant]
  10. BENSTROPINE MESYLATE [Concomitant]
  11. TRAZODONE HCL [Concomitant]
  12. GLIMEPIRIDE [Concomitant]
  13. TRAMADOL HCL [Concomitant]

REACTIONS (8)
  - Asthenia [None]
  - Confusional state [None]
  - Fall [None]
  - Urinary incontinence [None]
  - Faecal incontinence [None]
  - White blood cell count decreased [None]
  - Platelet count decreased [None]
  - Neutrophil count decreased [None]
